FAERS Safety Report 9664474 (Version 4)
Quarter: 2014Q1

REPORT INFORMATION
  Report Type: Report from Study
  Country: JP (occurrence: JP)
  Receive Date: 20131101
  Receipt Date: 20140312
  Transmission Date: 20141002
  Serious: Yes (Hospitalization, Other)
  Sender: FDA-Public Use
  Company Number: JP-ABBVIE-10P-087-0618535-00

PATIENT
  Age: 63 Year
  Sex: Female
  Weight: 38.4 kg

DRUGS (15)
  1. HUMIRA [Suspect]
     Indication: RHEUMATOID ARTHRITIS
     Route: 058
     Dates: start: 20090831, end: 20091105
  2. METOLATE [Suspect]
     Indication: RHEUMATOID ARTHRITIS
     Route: 048
     Dates: start: 20090209
  3. METOLATE [Suspect]
     Route: 048
     Dates: start: 20090713, end: 20091105
  4. FOLIC ACID [Concomitant]
     Indication: PROPHYLAXIS
     Route: 048
     Dates: end: 20091105
  5. FOLIC ACID [Concomitant]
     Indication: ADVERSE EVENT
  6. CELECOXIB [Concomitant]
     Indication: RHEUMATOID ARTHRITIS
     Route: 048
     Dates: end: 20091119
  7. CELECOXIB [Concomitant]
     Dosage: DAILY
  8. RISEDRONATE SODIUM [Concomitant]
     Indication: OSTEOPOROSIS PROPHYLAXIS
     Route: 048
     Dates: end: 20091119
  9. RISEDRONATE SODIUM [Concomitant]
  10. REBAMIPIDE [Concomitant]
     Indication: GASTRITIS PROPHYLAXIS
     Route: 048
     Dates: end: 20091119
  11. REBAMIPIDE [Concomitant]
  12. ISONIAZID [Concomitant]
     Indication: ANTIBIOTIC PROPHYLAXIS
     Route: 048
     Dates: end: 20091119
  13. ISONIAZID [Concomitant]
  14. URSODEOXYCHOLIC ACID [Concomitant]
     Indication: HEPATIC FUNCTION ABNORMAL
     Route: 048
     Dates: end: 20091119
  15. URSODEOXYCHOLIC ACID [Concomitant]

REACTIONS (5)
  - Polymyositis [Recovering/Resolving]
  - Peripheral T-cell lymphoma unspecified [Recovered/Resolved]
  - Liver disorder [Unknown]
  - Stomatitis [Unknown]
  - Hepatic function abnormal [Recovered/Resolved]
